FAERS Safety Report 11991175 (Version 2)
Quarter: 2017Q1

REPORT INFORMATION
  Report Type: Spontaneous
  Country: US (occurrence: US)
  Receive Date: 20160203
  Receipt Date: 20170317
  Transmission Date: 20170428
  Serious: Yes (Other)
  Sender: FDA-Public Use
  Company Number: US-JNJFOC-20160106284

PATIENT
  Sex: Male

DRUGS (4)
  1. RISPERDAL [Suspect]
     Active Substance: RISPERIDONE
     Indication: AUTISM
     Route: 048
     Dates: start: 2005, end: 2009
  2. RISPERDAL [Suspect]
     Active Substance: RISPERIDONE
     Indication: ABNORMAL BEHAVIOUR
     Route: 048
     Dates: start: 2005, end: 2009
  3. INVEGA [Suspect]
     Active Substance: PALIPERIDONE
     Indication: AUTISM
     Route: 048
     Dates: start: 2005, end: 2009
  4. INVEGA [Suspect]
     Active Substance: PALIPERIDONE
     Indication: ABNORMAL BEHAVIOUR
     Route: 048
     Dates: start: 2005, end: 2009

REACTIONS (2)
  - Gynaecomastia [Unknown]
  - Obesity [Unknown]
